FAERS Safety Report 15336568 (Version 1)
Quarter: 2018Q3

REPORT INFORMATION
  Report Type: Report from Study
  Country: US (occurrence: US)
  Receive Date: 20180830
  Receipt Date: 20180830
  Transmission Date: 20181010
  Serious: Yes (Other)
  Sender: FDA-Public Use
  Company Number: US-BIOGEN-2018BI00626450

PATIENT
  Sex: Female

DRUGS (1)
  1. TECFIDERA [Suspect]
     Active Substance: DIMETHYL FUMARATE
     Indication: MULTIPLE SCLEROSIS
     Dosage: MAINTENANCE DOSE
     Route: 048
     Dates: start: 201805, end: 201807

REACTIONS (6)
  - Headache [Unknown]
  - Pain [Unknown]
  - Amnesia [Unknown]
  - Abdominal pain [Unknown]
  - Hypertension [Unknown]
  - Constipation [Unknown]
